FAERS Safety Report 7798478-9 (Version None)
Quarter: 2011Q4

REPORT INFORMATION
  Report Type: 
  Country: None (occurrence: None)
  Receive Date: 20111005
  Receipt Date: 20110926
  Transmission Date: 20120403
  Serious: Yes (Other)
  Sender: FDA-Public Use
  Company Number: DE-ELI_LILLY_AND_COMPANY-DE201107007182

PATIENT
  Sex: Female
  Weight: 55 kg

DRUGS (3)
  1. ANTIHYPERTENSIVES [Concomitant]
  2. CAD [Concomitant]
  3. FORTEO [Suspect]
     Indication: OSTEOPOROSIS
     Dosage: UNK, QD
     Route: 058
     Dates: start: 20100430

REACTIONS (4)
  - NAUSEA [None]
  - FEEDING DISORDER [None]
  - WEIGHT DECREASED [None]
  - CONSTIPATION [None]
